FAERS Safety Report 8491749-2 (Version None)
Quarter: 2012Q3

REPORT INFORMATION
  Report Type: 
  Country: None (occurrence: None)
  Receive Date: 20120706
  Receipt Date: 20120628
  Transmission Date: 20120928
  Serious: Yes (Death, Hospitalization)
  Sender: FDA-Public Use
  Company Number: FR-GENZYME-CLOF-1002201

PATIENT
  Sex: Male
  Weight: 62.2 kg

DRUGS (5)
  1. NOVORAPID [Concomitant]
     Indication: DIABETES MELLITUS
     Dosage: UNK
     Route: 065
     Dates: start: 20120327
  2. INSULIN [Concomitant]
     Indication: DIABETES MELLITUS
     Dosage: 28 IU, UNK
     Route: 065
     Dates: start: 20120327
  3. BACTRIM [Concomitant]
     Indication: INFECTION PROPHYLAXIS
     Dosage: UNK
     Route: 065
  4. CLOFARABINE [Suspect]
     Indication: PRODUCT USED FOR UNKNOWN INDICATION
     Dosage: UNK
     Route: 042
     Dates: start: 20111117, end: 20111121
  5. TRAMADOL HCL [Concomitant]
     Indication: PAIN PROPHYLAXIS
     Dosage: UNK
     Route: 065
     Dates: start: 20120412

REACTIONS (1)
  - LUNG DISORDER [None]
